FAERS Safety Report 7929832-X (Version None)
Quarter: 2011Q4

REPORT INFORMATION
  Report Type: 
  Country: None (occurrence: None)
  Receive Date: 20111121
  Receipt Date: 20111111
  Transmission Date: 20120403
  Serious: Yes (Other)
  Sender: FDA-Public Use
  Company Number: US-JNJFOC-20111105736

PATIENT
  Age: 34 Year
  Sex: Female
  Weight: 72.58 kg

DRUGS (8)
  1. MONISTAT 1 COMBINATION PACK [Suspect]
     Route: 061
  2. MONISTAT 1 COMBINATION PACK [Suspect]
     Dosage: 1 APPLICATOR
     Route: 061
     Dates: start: 20111110, end: 20111110
  3. MONISTAT 1 COMBINATION PACK [Suspect]
     Route: 067
  4. MONISTAT-3 COMBINATION PACK [Suspect]
     Route: 067
  5. MONISTAT-3 COMBINATION PACK [Suspect]
     Indication: FUNGAL INFECTION
     Dosage: DIME SIZE AMOUNT
     Route: 061
     Dates: start: 20111110, end: 20111111
  6. MONISTAT-3 COMBINATION PACK [Suspect]
     Route: 067
  7. MONISTAT 1 COMBINATION PACK [Suspect]
     Indication: FUNGAL INFECTION
     Route: 067
     Dates: start: 20111110, end: 20111110
  8. MONISTAT-3 COMBINATION PACK [Suspect]
     Route: 061

REACTIONS (9)
  - VULVOVAGINAL PRURITUS [None]
  - VAGINAL DISORDER [None]
  - VAGINAL HAEMORRHAGE [None]
  - VULVOVAGINAL BURNING SENSATION [None]
  - HERPES VIRUS INFECTION [None]
  - VULVOVAGINAL ERYTHEMA [None]
  - VULVOVAGINAL SWELLING [None]
  - WRONG TECHNIQUE IN DRUG USAGE PROCESS [None]
  - CHILLS [None]
